FAERS Safety Report 7151466-8 (Version None)
Quarter: 2010Q4

REPORT INFORMATION
  Report Type: 
  Country: None (occurrence: None)
  Receive Date: 20101210
  Receipt Date: 20101201
  Transmission Date: 20110411
  Serious: Yes (Other)
  Sender: FDA-Public Use
  Company Number: US-GENZYME-THYM-1002150

PATIENT

DRUGS (2)
  1. THYMOGLOBULIN [Suspect]
     Indication: INTESTINE TRANSPLANT REJECTION
     Route: 042
  2. TACROLIMUS [Concomitant]
     Indication: IMMUNOSUPPRESSION

REACTIONS (7)
  - BRONCHOPULMONARY ASPERGILLOSIS [None]
  - CARDIOPULMONARY FAILURE [None]
  - ENTEROCOCCAL BACTERAEMIA [None]
  - GRAFT LOSS [None]
  - HYPERTROPHIC OSTEOARTHROPATHY [None]
  - THROMBOTIC MICROANGIOPATHY [None]
  - TRANSPLANT REJECTION [None]
